FAERS Safety Report 13463293 (Version 1)
Quarter: 2017Q2

REPORT INFORMATION
  Report Type: Spontaneous
  Country: US (occurrence: US)
  Receive Date: 20170420
  Receipt Date: 20170420
  Transmission Date: 20170830
  Serious: Yes (Other)
  Sender: FDA-Public Use
  Company Number: US-PERRIGO-17US003227

PATIENT
  Age: 32 Year
  Sex: Male

DRUGS (2)
  1. CLOMIPHENE                         /00061301/ [Suspect]
     Active Substance: CLOMIPHENE
     Indication: BLOOD TESTOSTERONE DECREASED
     Dosage: 50 MG, QD
     Route: 065
  2. TESTOSTERONE. [Suspect]
     Active Substance: TESTOSTERONE
     Indication: BLOOD TESTOSTERONE DECREASED
     Dosage: 50 MG, QD
     Route: 061

REACTIONS (1)
  - Osteonecrosis of jaw [Recovering/Resolving]
